FAERS Safety Report 7126572-4 (Version None)
Quarter: 2010Q4

REPORT INFORMATION
  Report Type: 
  Country: None (occurrence: None)
  Receive Date: 20101129
  Receipt Date: 20101118
  Transmission Date: 20110411
  Serious: Yes (Hospitalization)
  Sender: FDA-Public Use
  Company Number: FR-ASTRAZENECA-2010SE52911

PATIENT
  Age: 62 Year
  Sex: Female

DRUGS (7)
  1. NEXIUM [Interacting]
     Indication: GASTRITIS
     Route: 048
     Dates: start: 20101015, end: 20101017
  2. NEXIUM [Interacting]
     Route: 048
     Dates: start: 20101018, end: 20101020
  3. MYTELASE [Interacting]
     Indication: MUSCULAR WEAKNESS
     Route: 048
  4. TAGAMET [Suspect]
     Indication: OESOPHAGITIS
     Route: 048
     Dates: start: 20101101, end: 20101103
  5. MESTINON RETARD [Concomitant]
     Indication: MUSCULAR WEAKNESS
     Route: 048
  6. CORTANCYL [Concomitant]
     Indication: MUSCULAR WEAKNESS
     Route: 048
  7. IMUREL [Concomitant]
     Indication: MUSCULAR WEAKNESS
     Route: 048

REACTIONS (3)
  - DRUG INTERACTION [None]
  - MUSCULAR WEAKNESS [None]
  - MYASTHENIA GRAVIS [None]
